FAERS Safety Report 7039189-7 (Version None)
Quarter: 2010Q4

REPORT INFORMATION
  Report Type: 
  Country: None (occurrence: None)
  Receive Date: 20101012
  Receipt Date: 20101001
  Transmission Date: 20110411
  Serious: Yes (Other)
  Sender: FDA-Public Use
  Company Number: ES-WYE-H18062810

PATIENT

DRUGS (4)
  1. TRANGOREX [Suspect]
  2. SIMVASTATIN [Suspect]
  3. DOXAZOSIN MESYLATE [Suspect]
  4. APROVEL [Suspect]

REACTIONS (1)
  - CARDIOVASCULAR DISORDER [None]
